FAERS Safety Report 22982557 (Version 2)
Quarter: 2023Q4

REPORT INFORMATION
  Report Type: Report from Study
  Country: VN (occurrence: VN)
  Receive Date: 20230926
  Receipt Date: 20231009
  Transmission Date: 20240109
  Serious: Yes (Hospitalization)
  Sender: FDA-Public Use
  Company Number: VN-002147023-NVSC2023VN206703

PATIENT
  Age: 62 Year
  Sex: Female

DRUGS (1)
  1. SACUBITRIL\VALSARTAN [Suspect]
     Active Substance: SACUBITRIL\VALSARTAN
     Indication: Cardiac failure
     Dosage: UNK
     Route: 048

REACTIONS (1)
  - Dyspnoea [Recovering/Resolving]

NARRATIVE: CASE EVENT DATE: 20230921
